FAERS Safety Report 8006708-3 (Version None)
Quarter: 2011Q4

REPORT INFORMATION
  Report Type: 
  Country: None (occurrence: None)
  Receive Date: 20111227
  Receipt Date: 20111216
  Transmission Date: 20120403
  Serious: Yes (Other)
  Sender: FDA-Public Use
  Company Number: US-BAYER-2011-104800

PATIENT
  Age: 25 Year
  Sex: Female
  Weight: 105.2 kg

DRUGS (4)
  1. YAZ [Suspect]
     Indication: DYSMENORRHOEA
     Dosage: UNK
     Dates: start: 20110511, end: 20110807
  2. YAZ [Suspect]
     Indication: MENSTRUATION IRREGULAR
  3. TRAMADOL HCL [Concomitant]
     Dosage: 100 MG, UNK
     Route: 048
  4. METAXALONE [Concomitant]
     Dosage: 800 MG, UNK
     Route: 048

REACTIONS (4)
  - EMBOLISM VENOUS [None]
  - CHEST PAIN [None]
  - HYPOAESTHESIA [None]
  - PULMONARY EMBOLISM [None]
